FAERS Safety Report 16194715 (Version 12)
Quarter: 2024Q2

REPORT INFORMATION
  Report Type: Report from Study
  Country: DE (occurrence: DE)
  Receive Date: 20190414
  Receipt Date: 20240424
  Transmission Date: 20240716
  Serious: Yes (Hospitalization, Other)
  Sender: FDA-Public Use
  Company Number: DE-BRISTOL-MYERS SQUIBB COMPANY-BMS-2018-106053

PATIENT
  Age: 72 Year
  Sex: Male
  Weight: 85 kg

DRUGS (23)
  1. NIVOLUMAB [Suspect]
     Active Substance: NIVOLUMAB
     Indication: Malignant melanoma
     Dosage: 1 DF, Q3WK
     Dates: start: 20180606, end: 20180627
  2. NIVOLUMAB [Suspect]
     Active Substance: NIVOLUMAB
     Indication: Lung neoplasm malignant
     Dosage: 1 DF, Q3WK
     Dates: start: 20180718, end: 20180808
  3. NIVOLUMAB [Suspect]
     Active Substance: NIVOLUMAB
     Dosage: 1 DF, Q2WK
     Dates: start: 20180829, end: 20181024
  4. IPILIMUMAB [Suspect]
     Active Substance: IPILIMUMAB
     Indication: Malignant melanoma
     Dosage: 1 DF, Q3WK
     Dates: start: 20180606, end: 20180808
  5. IPILIMUMAB [Suspect]
     Active Substance: IPILIMUMAB
     Indication: Lung neoplasm malignant
  6. LEVOTHYROXINE SODIUM [Suspect]
     Active Substance: LEVOTHYROXINE SODIUM
     Indication: Product used for unknown indication
     Dosage: 25 MILLIGRAM, QD
     Route: 048
     Dates: start: 20181203
  7. METFORMIN [Concomitant]
     Active Substance: METFORMIN HYDROCHLORIDE
     Indication: Diabetes mellitus
     Dosage: 2000 MG, DAILY
     Route: 048
     Dates: start: 20090101
  8. METFORMIN [Concomitant]
     Active Substance: METFORMIN HYDROCHLORIDE
     Dosage: 1000 UNK, UNK
     Route: 048
  9. AMLODIPINE [Concomitant]
     Active Substance: AMLODIPINE BESYLATE
     Indication: Hypertension
     Dosage: 10 MG, DAILY
     Route: 048
     Dates: start: 20090101
  10. AMLODIPINE [Concomitant]
     Active Substance: AMLODIPINE BESYLATE
     Dosage: 5 MG, UNK
     Route: 048
  11. HYDROCHLOROTHIAZIDE [Concomitant]
     Active Substance: HYDROCHLOROTHIAZIDE
     Indication: Hypertension
     Dosage: 50 MG, DAILY
     Route: 048
     Dates: start: 20090101
  12. HYDROCHLOROTHIAZIDE [Concomitant]
     Active Substance: HYDROCHLOROTHIAZIDE
     Dosage: 25 MG, UNK
     Route: 048
  13. METOPROLOL [Concomitant]
     Active Substance: METOPROLOL
     Indication: Hypertension
     Dosage: 190 MG, DAILY
     Route: 048
     Dates: start: 20090101
  14. METOPROLOL [Concomitant]
     Active Substance: METOPROLOL
     Dosage: 95 MG, UNK
     Route: 048
  15. VALSARTAN [Concomitant]
     Active Substance: VALSARTAN
     Indication: Hypertension
     Dosage: 320 MG, DAILY
     Route: 048
     Dates: start: 20090101
  16. VALSARTAN [Concomitant]
     Active Substance: VALSARTAN
     Dosage: 160 MG, UNK
     Route: 048
  17. METHYLPREDNISOLONE [Concomitant]
     Active Substance: METHYLPREDNISOLONE
     Indication: Product used for unknown indication
     Dosage: 72 MILLIGRAM, DAILY
     Route: 048
     Dates: start: 20181101, end: 20181116
  18. METHYLPREDNISOLONE [Concomitant]
     Active Substance: METHYLPREDNISOLONE
     Dosage: 72 MILLIGRAM, DAILY
     Route: 048
     Dates: start: 20181117, end: 20181123
  19. METHYLPREDNISOLONE [Concomitant]
     Active Substance: METHYLPREDNISOLONE
     Dosage: 72 MILLIGRAM, DAILY
     Route: 048
     Dates: start: 20181116, end: 20181122
  20. METHYLPREDNISOLONE [Concomitant]
     Active Substance: METHYLPREDNISOLONE
     Dosage: 72 MILLIGRAM, DAILY
     Route: 048
     Dates: start: 20181124, end: 20181129
  21. METHYLPREDNISOLONE [Concomitant]
     Active Substance: METHYLPREDNISOLONE
     Dosage: 50 MILLIGRAM, DAILY
     Route: 048
     Dates: start: 20181123, end: 20181129
  22. METHYLPREDNISOLONE [Concomitant]
     Active Substance: METHYLPREDNISOLONE
     Dosage: 15 MILLIGRAM, DAILY
     Route: 048
     Dates: start: 20181130, end: 20181206
  23. METHYLPREDNISOLONE [Concomitant]
     Active Substance: METHYLPREDNISOLONE
     Dosage: 40 MILLIGRAM, DAILY
     Route: 048
     Dates: start: 20190730, end: 20190830

REACTIONS (12)
  - Encephalopathy [Unknown]
  - Autoimmune thyroiditis [Unknown]
  - Cognitive disorder [Not Recovered/Not Resolved]
  - Amaurosis [Unknown]
  - Malignant neoplasm progression [Unknown]
  - Optic atrophy [Recovering/Resolving]
  - Pneumonia [Unknown]
  - General physical health deterioration [Unknown]
  - Gastroenteritis [Unknown]
  - Diarrhoea [Unknown]
  - Hypotonia [Unknown]
  - Weight decreased [Unknown]

NARRATIVE: CASE EVENT DATE: 20180913
